FAERS Safety Report 9297991 (Version 2)
Quarter: 2013Q3

REPORT INFORMATION
  Report Type: Spontaneous
  Country: US (occurrence: None)
  Receive Date: 20120913
  Receipt Date: 20130815
  Transmission Date: 20140515
  Serious: Yes (Other)
  Sender: FDA-Public Use
  Company Number: ADR-2010-8431

PATIENT
  Sex: Male

DRUGS (4)
  1. LIORESAL INTRATHECAL(BACLOFEN INJECTION) 2000 MCG/ML [Suspect]
     Indication: MUSCLE SPASTICITY
     Route: 037
  2. LIORESAL INTRATHECAL(BACLOFEN INJECTION) 2000 MCG/ML [Suspect]
     Indication: CEREBRAL PALSY
     Route: 037
  3. BACLOFEN [Concomitant]
  4. GABAPENTIN [Concomitant]

REACTIONS (16)
  - Muscle rigidity [None]
  - Hypertonia [None]
  - Hypotonia [None]
  - Somnolence [None]
  - Device damage [None]
  - Cerebrospinal fluid leakage [None]
  - Device occlusion [None]
  - Localised intraabdominal fluid collection [None]
  - Overdose [None]
  - Drug withdrawal syndrome [None]
  - Muscle tightness [None]
  - Loss of consciousness [None]
  - Device kink [None]
  - Therapeutic response unexpected [None]
  - Implant site extravasation [None]
  - Dural tear [None]
